FAERS Safety Report 8187914-4 (Version None)
Quarter: 2012Q1

REPORT INFORMATION
  Report Type: 
  Country: None (occurrence: None)
  Receive Date: 20120306
  Receipt Date: 20120213
  Transmission Date: 20120608
  Serious: Yes (Hospitalization)
  Sender: FDA-Public Use
  Company Number: US-GLAXOSMITHKLINE-A0961013A

PATIENT
  Age: 56 Year
  Sex: Male
  Weight: 114.5 kg

DRUGS (18)
  1. CALCIUM GLUCONATE [Concomitant]
  2. ELTROMBOPAG [Suspect]
     Indication: MULTIPLE MYELOMA
     Dosage: 50MG PER DAY
     Route: 048
     Dates: start: 20111204, end: 20111213
  3. NEUPOGEN [Suspect]
     Indication: MULTIPLE MYELOMA
     Dates: start: 20111204, end: 20111213
  4. COMPAZINE [Concomitant]
  5. ZOFRAN [Concomitant]
  6. MESNA [Concomitant]
  7. CALCIUM CARBONATE [Concomitant]
  8. BENADRYL [Concomitant]
  9. ACYCLOVIR [Suspect]
     Indication: PROPHYLAXIS
     Dosage: 400MG THREE TIMES PER DAY
     Route: 048
     Dates: start: 20111217
  10. ATIVAN [Concomitant]
  11. VALACYCLOVIR [Concomitant]
  12. NEUPOGEN [Concomitant]
  13. MAGNESIUM [Concomitant]
  14. ACCUPRIL [Concomitant]
  15. FOLIC ACID [Concomitant]
  16. METFORMIN HCL [Concomitant]
  17. MULTI-VITAMIN [Concomitant]
  18. OXYCODONE HCL [Concomitant]

REACTIONS (1)
  - DELAYED ENGRAFTMENT [None]
